FAERS Safety Report 9943510 (Version 2)
Quarter: 2014Q1

REPORT INFORMATION
  Report Type: Report from Study
  Country: US (occurrence: US)
  Receive Date: 20140303
  Receipt Date: 20140303
  Transmission Date: 20141002
  Serious: No
  Sender: FDA-Public Use
  Company Number: US-ABBVIE-12P-163-1020916-00

PATIENT
  Sex: Female
  Weight: 86.26 kg

DRUGS (6)
  1. HUMIRA [Suspect]
     Indication: CROHN^S DISEASE
     Dosage: LOADING DOSE
     Dates: start: 20121128, end: 20121128
  2. HUMIRA [Suspect]
     Dates: end: 20121226
  3. PENTASA [Concomitant]
     Indication: CROHN^S DISEASE
     Dosage: 4 TABLETS, 4 TIMES DAILY
  4. VITAMIN B 12 [Concomitant]
     Indication: PRODUCT USED FOR UNKNOWN INDICATION
     Route: 030
  5. VITAMIN D3 [Concomitant]
     Indication: VITAMIN SUPPLEMENTATION
     Route: 060
  6. ADVAIR [Concomitant]
     Indication: CHRONIC OBSTRUCTIVE PULMONARY DISEASE
     Route: 055

REACTIONS (7)
  - Pain in extremity [Not Recovered/Not Resolved]
  - Joint stiffness [Not Recovered/Not Resolved]
  - Oedema peripheral [Not Recovered/Not Resolved]
  - Abdominal pain upper [Not Recovered/Not Resolved]
  - Local swelling [Not Recovered/Not Resolved]
  - Alopecia [Not Recovered/Not Resolved]
  - Dandruff [Not Recovered/Not Resolved]
